FAERS Safety Report 5225433-5 (Version None)
Quarter: 2007Q1

REPORT INFORMATION
  Report Type: 
  Country: None (occurrence: None)
  Receive Date: 20061201
  Receipt Date: 20060822
  Transmission Date: 20070707
  Serious: No
  Sender: FDA-Public Use
  Company Number: US200608004820

PATIENT
  Age: 59 Year
  Sex: Male

DRUGS (17)
  1. CYMBALTA [Suspect]
     Indication: DEPRESSION
     Dosage: 60 MG
     Dates: start: 20060601, end: 20060801
  2. VICODIN [Concomitant]
  3. NEURONTIN [Concomitant]
  4. GLUCOHAGE (METFORMIN HYDROCHLORIDE) [Concomitant]
  5. BUPROPION HCL [Concomitant]
  6. POTASSIUM (POTASSIUM) [Concomitant]
  7. LASIX [Concomitant]
  8. ASPIRIN [Concomitant]
  9. EZETIMIBE (EZETIMIBE) [Concomitant]
  10. OTHER ANTIDIARRHOEALS [Concomitant]
  11. ACTOS /USA/ (PIOGLITAZONE HYDROCHLORIDE) [Concomitant]
  12. PLAVIX [Concomitant]
  13. LISINOPRIL [Concomitant]
  14. VALIUM /NET/ (DIAZEPAM) [Concomitant]
  15. AMBIEN [Concomitant]
  16. ESZOPICLONE (ESZOPICLONE) [Concomitant]
  17. SIMVASTATIN [Concomitant]

REACTIONS (5)
  - DEPRESSION [None]
  - DIARRHOEA [None]
  - FEELING ABNORMAL [None]
  - INSOMNIA [None]
  - SOCIAL AVOIDANT BEHAVIOUR [None]
